FAERS Safety Report 8599366-0 (Version None)
Quarter: 2012Q3

REPORT INFORMATION
  Report Type: 
  Country: None (occurrence: None)
  Receive Date: 20120816
  Receipt Date: 20120807
  Transmission Date: 20120928
  Serious: Yes (Other)
  Sender: FDA-Public Use
  Company Number: US-ROCHE-1065792

PATIENT
  Sex: Female
  Weight: 54.48 kg

DRUGS (2)
  1. ACCUTANE [Suspect]
     Indication: ACNE CYSTIC
     Route: 065
     Dates: start: 19991001, end: 20000501
  2. ACCUTANE [Suspect]
     Route: 065
     Dates: start: 20040101

REACTIONS (5)
  - INTESTINAL OBSTRUCTION [None]
  - INFLAMMATORY BOWEL DISEASE [None]
  - PROCTITIS [None]
  - INTESTINAL HAEMORRHAGE [None]
  - DEPRESSED MOOD [None]
